FAERS Safety Report 9140626 (Version 4)
Quarter: 2013Q2

REPORT INFORMATION
  Report Type: Spontaneous
  Country: US (occurrence: US)
  Receive Date: 20130305
  Receipt Date: 20130613
  Transmission Date: 20140414
  Serious: Yes (Other)
  Sender: FDA-Public Use
  Company Number: US-BAYER-2013-027387

PATIENT
  Age: 27 Year
  Sex: Female
  Weight: 57 kg

DRUGS (2)
  1. MIRENA [Suspect]
     Indication: CONTRACEPTION
     Dosage: 20 MCG/24HR, CONT
     Route: 015
     Dates: start: 20111118, end: 20130115
  2. VITAMINE D3 B.O.N. [Concomitant]

REACTIONS (8)
  - Asthenia [Recovered/Resolved]
  - Fatigue [Recovered/Resolved]
  - Tremor [Recovered/Resolved]
  - Hypoglycaemia [None]
  - Chemical poisoning [None]
  - Nausea [Recovered/Resolved]
  - Device breakage [None]
  - Pregnancy with contraceptive device [None]
